FAERS Safety Report 24028932 (Version 1)
Quarter: 2024Q2

REPORT INFORMATION
  Report Type: Spontaneous
  Country: RO (occurrence: RO)
  Receive Date: 20240628
  Receipt Date: 20240628
  Transmission Date: 20240716
  Serious: Yes (Hospitalization)
  Sender: FDA-Public Use
  Company Number: RO-RICHTER-2024-GR-006177

PATIENT
  Age: 47 Year
  Sex: Female

DRUGS (2)
  1. ESTRADIOL\NORETHINDRONE ACETATE\RELUGOLIX [Suspect]
     Active Substance: ESTRADIOL\NORETHINDRONE ACETATE\RELUGOLIX
     Indication: Uterine leiomyoma
     Dosage: UNKNOWN
     Route: 065
     Dates: end: 202404
  2. ESTRADIOL\NORETHINDRONE ACETATE\RELUGOLIX [Suspect]
     Active Substance: ESTRADIOL\NORETHINDRONE ACETATE\RELUGOLIX
     Indication: Intermenstrual bleeding
     Dosage: UNKNOWN
     Route: 065
     Dates: start: 20240501

REACTIONS (2)
  - Condition aggravated [Unknown]
  - Intermenstrual bleeding [Unknown]

NARRATIVE: CASE EVENT DATE: 20240401
